FAERS Safety Report 4588590-X (Version None)
Quarter: 2005Q1

REPORT INFORMATION
  Report Type: 
  Country: None (occurrence: None)
  Receive Date: 20050222
  Receipt Date: 20040810
  Transmission Date: 20050727
  Serious: Yes (Hospitalization)
  Sender: FDA-Public Use
  Company Number: IE-ROCHE-377532

PATIENT
  Age: 43 Year
  Sex: Female
  Weight: 80 kg

DRUGS (4)
  1. PEGASYS [Suspect]
     Indication: HEPATITIS C
     Route: 058
     Dates: start: 20040420
  2. METHADONE [Concomitant]
     Dosage: TAKEN DAILY.
     Route: 048
  3. ACETAMINOPHEN [Concomitant]
     Dosage: AS REQUIRED.
     Route: 048
  4. COPEGUS [Suspect]
     Indication: HEPATITIS C
     Route: 048
     Dates: start: 20040420

REACTIONS (4)
  - ARTHRITIS [None]
  - ASTHENIA [None]
  - DRUG HYPERSENSITIVITY [None]
  - LETHARGY [None]
